FAERS Safety Report 24238868 (Version 1)
Quarter: 2024Q3

REPORT INFORMATION
  Report Type: Spontaneous
  Country: CN (occurrence: CN)
  Receive Date: 20240822
  Receipt Date: 20240822
  Transmission Date: 20241016
  Serious: Yes (Hospitalization)
  Sender: ROCHE
  Company Number: CN-ROCHE-10000056402

PATIENT
  Age: 56 Year
  Sex: Male
  Weight: 70 kg

DRUGS (2)
  1. BEVACIZUMAB [Suspect]
     Active Substance: BEVACIZUMAB
     Indication: Hepatocellular carcinoma
     Dosage: WE CONSIDERED THE START TIME OF ADMINISTRATION AS MARCH 6 ACCORDING TO THE DESCRIPTION
     Route: 042
     Dates: start: 20240306
  2. ATEZOLIZUMAB [Suspect]
     Active Substance: ATEZOLIZUMAB
     Indication: Hepatocellular carcinoma
     Dosage: WE CONSIDERED THE START TIME OF ADMINISTRATION AS MARCH 6 ACCORDING TO THE DESCRIPTION
     Route: 042
     Dates: start: 20240306, end: 20240710

REACTIONS (2)
  - Type 1 diabetes mellitus [Recovering/Resolving]
  - Ketoacidosis [Recovering/Resolving]

NARRATIVE: CASE EVENT DATE: 20240728
